FAERS Safety Report 4376826-X (Version None)
Quarter: 2004Q2

REPORT INFORMATION
  Report Type: 
  Country: None (occurrence: None)
  Receive Date: 20040609
  Receipt Date: 20040426
  Transmission Date: 20050107
  Serious: Yes (Other)
  Sender: FDA-Public Use
  Company Number: PHEH2004US04355

PATIENT
  Age: 70 Year
  Sex: Male

DRUGS (11)
  1. GLEEVEC [Suspect]
     Indication: CHRONIC MYELOID LEUKAEMIA
     Dosage: 400 MG, QD, ORAL
     Route: 048
     Dates: start: 19990101, end: 20031201
  2. GLEEVEC [Suspect]
     Indication: CHRONIC MYELOID LEUKAEMIA
     Dosage: 400 MG, QD, ORAL
     Route: 048
     Dates: start: 20031201
  3. PROCRIT (ERYTHROPOIETIN) [Concomitant]
  4. LEVOXYL [Concomitant]
  5. ATENOLOL [Concomitant]
  6. QUININE [Concomitant]
  7. KLOR-CON [Concomitant]
  8. NIASPAN [Concomitant]
  9. IRON (SLOW FE) [Concomitant]
  10. LOMOTIL (DIPHENOXYLATE HYDROCHLORIDE) [Concomitant]
  11. K-LOR [Concomitant]

REACTIONS (5)
  - DIARRHOEA [None]
  - GASTRITIS [None]
  - HAEMATOCHEZIA [None]
  - OCCULT BLOOD POSITIVE [None]
  - SMALL INTESTINAL HAEMORRHAGE [None]
